FAERS Safety Report 16303376 (Version 1)
Quarter: 2019Q2

REPORT INFORMATION
  Report Type: Spontaneous
  Country: US (occurrence: US)
  Receive Date: 20190513
  Receipt Date: 20190513
  Transmission Date: 20190711
  Serious: No
  Sender: FDA-Public Use
  Company Number: US-BAYER-2019-094037

PATIENT
  Age: 92 Year
  Sex: Male

DRUGS (3)
  1. EQUATE [ACETYLSALICYLIC ACID] [Concomitant]
  2. DULCOLAX STOOL SOFTENER [Concomitant]
     Active Substance: DOCUSATE SODIUM
     Indication: GASTROINTESTINAL DISORDER
  3. MIRALAX [Suspect]
     Active Substance: POLYETHYLENE GLYCOL 3350
     Indication: GASTROINTESTINAL DISORDER
     Dosage: 2-3 DF, QD

REACTIONS (1)
  - Therapeutic product effect delayed [Unknown]
